FAERS Safety Report 8104198-3 (Version None)
Quarter: 2012Q1

REPORT INFORMATION
  Report Type: 
  Country: None (occurrence: None)
  Receive Date: 20120201
  Receipt Date: 20120117
  Transmission Date: 20120608
  Serious: Yes (Other)
  Sender: FDA-Public Use
  Company Number: US-WATSON-2012-01242

PATIENT
  Age: 57 Year
  Sex: Male

DRUGS (4)
  1. SULFAMETHOXAZOLE AND TRIMETHOPRIM [Suspect]
     Indication: PRODUCT USED FOR UNKNOWN INDICATION
  2. METRONIDAZOLE [Suspect]
     Indication: DIARRHOEA
     Dosage: UNK
     Route: 065
  3. PREDNISONE TAB [Suspect]
     Indication: STEM CELL TRANSPLANT
     Dosage: 15 MG DAILY
  4. ACYCLOVIR [Suspect]
     Indication: PRODUCT USED FOR UNKNOWN INDICATION

REACTIONS (1)
  - MANIA [None]
